FAERS Safety Report 25778730 (Version 1)
Quarter: 2025Q3

REPORT INFORMATION
  Report Type: Spontaneous
  Country: US (occurrence: US)
  Receive Date: 20250909
  Receipt Date: 20250909
  Transmission Date: 20251020
  Serious: No
  Sender: NOBELPHARMA
  Company Number: US-NPA-2025-AER-01507

PATIENT
  Sex: Male

DRUGS (7)
  1. HYFTOR [Suspect]
     Active Substance: SIROLIMUS
     Indication: Tuberous sclerosis complex
     Dates: start: 20250117
  2. ESCITALOPRAM [Concomitant]
     Active Substance: ESCITALOPRAM OXALATE
  3. GUANFACINE [Concomitant]
     Active Substance: GUANFACINE
  4. JORNAY PM EXTENDED-RELEASE [Concomitant]
     Active Substance: METHYLPHENIDATE HYDROCHLORIDE
  5. JORNAY PM EXTENDED-RELEASE [Concomitant]
     Active Substance: METHYLPHENIDATE HYDROCHLORIDE
  6. OXCARBAZEPINE [Concomitant]
     Active Substance: OXCARBAZEPINE
  7. VALTOCO [Concomitant]
     Active Substance: DIAZEPAM

REACTIONS (2)
  - Dermatitis acneiform [Unknown]
  - Product dose omission issue [Unknown]
